FAERS Safety Report 18636181 (Version 1)
Quarter: 2020Q4

REPORT INFORMATION
  Report Type: Report from Study
  Country: US (occurrence: US)
  Receive Date: 20201218
  Receipt Date: 20201218
  Transmission Date: 20210114
  Serious: Yes (Death, Hospitalization)
  Sender: FDA-Public Use
  Company Number: NVSC2020US336171

PATIENT
  Age: 48 Year
  Sex: Female
  Weight: 108.84 kg

DRUGS (1)
  1. TREPROSTINIL. [Suspect]
     Active Substance: TREPROSTINIL
     Indication: PULMONARY ARTERIAL HYPERTENSION
     Dosage: 38 38 NG/KG/MIN UNK
     Route: 042
     Dates: start: 20200902

REACTIONS (1)
  - Death [Fatal]

NARRATIVE: CASE EVENT DATE: 20201211
